FAERS Safety Report 20907266 (Version 1)
Quarter: 2022Q2

REPORT INFORMATION
  Report Type: Spontaneous
  Country: NZ (occurrence: NZ)
  Receive Date: 20220602
  Receipt Date: 20220602
  Transmission Date: 20220720
  Serious: Yes (Hospitalization)
  Sender: FDA-Public Use
  Company Number: NZ-MYLANLABS-2022M1041286

PATIENT
  Sex: Male

DRUGS (1)
  1. ACETAMINOPHEN [Suspect]
     Active Substance: ACETAMINOPHEN
     Indication: Patent ductus arteriosus
     Dosage: 15 MILLIGRAM/KILOGRAM (AT 6-HOUR INTERVAL OVER A 5-DAY DURATION)
     Route: 042

REACTIONS (3)
  - Toxicity to various agents [Recovered/Resolved]
  - Acute hepatic failure [Recovered/Resolved]
  - Off label use [Unknown]
